FAERS Safety Report 14651087 (Version 1)
Quarter: 2018Q1

REPORT INFORMATION
  Report Type: Spontaneous
  Country: US (occurrence: US)
  Receive Date: 20180316
  Receipt Date: 20180316
  Transmission Date: 20180509
  Serious: Yes (Hospitalization)
  Sender: FDA-Public Use
  Company Number: US-ALLERGAN-1814010US

PATIENT
  Age: 38 Year
  Sex: Female

DRUGS (2)
  1. LOESTRIN 24 FE [Suspect]
     Active Substance: ETHINYL ESTRADIOL\NORETHINDRONE ACETATE
     Indication: CONTRACEPTION
     Dosage: UNK, QHS
     Route: 048
     Dates: start: 201008
  2. LOESTRIN 24 FE [Suspect]
     Active Substance: ETHINYL ESTRADIOL\NORETHINDRONE ACETATE
     Dosage: UNK, QHS
     Route: 048
     Dates: start: 201011, end: 201011

REACTIONS (13)
  - Malaise [Unknown]
  - Dizziness [Unknown]
  - Limb discomfort [Unknown]
  - Thirst [Unknown]
  - Hypertension [Unknown]
  - Hernia [Recovered/Resolved]
  - Thrombosis [Recovered/Resolved]
  - Abdominal rigidity [Unknown]
  - Food allergy [Unknown]
  - Emotional distress [Unknown]
  - Asthenia [Unknown]
  - Nausea [Unknown]
  - Feeling abnormal [Unknown]

NARRATIVE: CASE EVENT DATE: 201009
